FAERS Safety Report 7771400-7 (Version None)
Quarter: 2011Q3

REPORT INFORMATION
  Report Type: 
  Country: None (occurrence: None)
  Receive Date: 20110922
  Receipt Date: 20100824
  Transmission Date: 20111222
  Serious: No
  Sender: FDA-Public Use
  Company Number: US-ASTRAZENECA-2008UW04667

PATIENT
  Age: 19754 Day
  Sex: Male
  Weight: 104.3 kg

DRUGS (34)
  1. SEROQUEL [Suspect]
     Indication: INSOMNIA
     Dosage: 12.5-75 MG
     Route: 048
     Dates: start: 20061120, end: 20071015
  2. SEROQUEL [Suspect]
     Dosage: 25 MG
     Route: 048
     Dates: start: 20061120, end: 20080123
  3. SEROQUEL [Suspect]
     Route: 048
     Dates: start: 20070201, end: 20070915
  4. PROPRANOLOL HYDROCHLORIDE [Concomitant]
     Dates: start: 20070503
  5. AMILORIDE HYDROCHLORIDE [Concomitant]
     Dosage: 10-15 MG
     Route: 048
     Dates: start: 20050614
  6. ZYPREXA [Concomitant]
     Dosage: 5 MG
     Dates: start: 20040101, end: 20050101
  7. SEROQUEL [Suspect]
     Indication: DEPRESSION
     Dosage: 12.5-75 MG
     Route: 048
     Dates: start: 20061120, end: 20071015
  8. REYATAZ [Concomitant]
     Indication: ANTIRETROVIRAL THERAPY
     Dosage: 300-600 MG DAILY
     Dates: start: 20041011
  9. ZYPREXA [Concomitant]
     Dosage: 2.5 MG
     Dates: start: 20031006, end: 20050101
  10. NOVOLOG [Concomitant]
     Dosage: 5 UNITS TWO TIMES A DAY, 5 UNITS WITH A SLIDING SCALE AT BREAKFAST AND SUPPER
     Dates: start: 20071109
  11. NORVASC [Concomitant]
     Route: 048
     Dates: start: 20040625
  12. LANTUS [Concomitant]
     Dosage: 15 UNITS EVERY AFTERNOON
     Route: 058
     Dates: start: 20071109
  13. PANCREASE MT 16 [Concomitant]
     Dosage: WITH MEALS
     Dates: start: 20060926
  14. ZIAGEN [Concomitant]
     Route: 048
     Dates: start: 20031030
  15. SEROQUEL [Suspect]
     Dosage: 25 MG
     Route: 048
     Dates: start: 20061120, end: 20080123
  16. SEROQUEL [Suspect]
     Route: 048
     Dates: start: 20071219, end: 20080123
  17. TRAZODONE HYDROCHLORIDE [Concomitant]
     Dates: start: 20071015
  18. KLOR-CON [Concomitant]
     Dates: start: 20060711
  19. SEROQUEL [Suspect]
     Indication: ANXIETY
     Dosage: 12.5-75 MG
     Route: 048
     Dates: start: 20061120, end: 20071015
  20. SEROQUEL [Suspect]
     Dosage: 25 MG
     Route: 048
     Dates: start: 20061120, end: 20080123
  21. SEROQUEL [Suspect]
     Route: 048
     Dates: start: 20070201, end: 20070915
  22. SEROQUEL [Suspect]
     Route: 048
     Dates: start: 20071219, end: 20080123
  23. SEROQUEL [Suspect]
     Route: 048
     Dates: start: 20071219, end: 20080123
  24. SEROQUEL [Suspect]
     Route: 048
     Dates: start: 20071219, end: 20080123
  25. TRAZODONE HYDROCHLORIDE [Concomitant]
     Indication: SLEEP DISORDER
     Dosage: 50-75 MG
     Dates: start: 20031031, end: 20061215
  26. NORVIR [Concomitant]
     Dosage: 100-300 MG
     Dates: start: 20031031
  27. SEROQUEL [Suspect]
     Indication: SLEEP DISORDER
     Dosage: 12.5-75 MG
     Route: 048
     Dates: start: 20061120, end: 20071015
  28. SEROQUEL [Suspect]
     Route: 048
     Dates: start: 20070201, end: 20070915
  29. ABILIFY [Concomitant]
     Dates: start: 20060515, end: 20080118
  30. SEROQUEL [Suspect]
     Dosage: 25 MG
     Route: 048
     Dates: start: 20061120, end: 20080123
  31. SEROQUEL [Suspect]
     Route: 048
     Dates: start: 20070201, end: 20070915
  32. LEXAPRO [Concomitant]
     Indication: MOOD ALTERED
     Dosage: 10-20 MG
     Dates: start: 20040315
  33. LACTULOSE [Concomitant]
     Indication: HEPATIC ENCEPHALOPATHY
     Dosage: 60 CC TWICE DAILY, 3 TABLESPOONS TWICE A DAY
     Dates: start: 20051206, end: 20060109
  34. ZYPREXA [Concomitant]
     Dosage: 15 MG
     Dates: start: 20030101

REACTIONS (2)
  - DIABETIC COMPLICATION [None]
  - TYPE 2 DIABETES MELLITUS [None]
